FAERS Safety Report 24429106 (Version 1)
Quarter: 2024Q4

REPORT INFORMATION
  Report Type: Spontaneous
  Country: US (occurrence: US)
  Receive Date: 20241011
  Receipt Date: 20241011
  Transmission Date: 20250114
  Serious: Yes (Other)
  Sender: ABBVIE
  Company Number: US-ABBVIE-5952040

PATIENT
  Age: 77 Year
  Sex: Female
  Weight: 76 kg

DRUGS (4)
  1. REFRESH TEARS PF [Suspect]
     Active Substance: CARBOXYMETHYLCELLULOSE SODIUM\GLYCERIN
     Indication: Dry eye
     Dosage: CMC 0.5% AND GLYCERIN 0.9% MDPF
     Route: 047
     Dates: start: 202409, end: 20240928
  2. PRAVASTATIN [Concomitant]
     Active Substance: PRAVASTATIN
     Indication: Blood cholesterol
  3. LOSARTAN [Concomitant]
     Active Substance: LOSARTAN
     Indication: Hypertension
  4. GLIPIZIDE [Concomitant]
     Active Substance: GLIPIZIDE
     Indication: Diabetes mellitus

REACTIONS (7)
  - Cataract [Unknown]
  - Foreign body sensation in eyes [Recovering/Resolving]
  - Abnormal sensation in eye [Recovering/Resolving]
  - Vision blurred [Recovering/Resolving]
  - Eye discharge [Recovering/Resolving]
  - Drug ineffective [Not Recovered/Not Resolved]
  - Visual impairment [Not Recovered/Not Resolved]

NARRATIVE: CASE EVENT DATE: 20240901
